FAERS Safety Report 17497301 (Version 1)
Quarter: 2020Q1

REPORT INFORMATION
  Report Type: Report from Study
  Country: DE (occurrence: DE)
  Receive Date: 20200304
  Receipt Date: 20200304
  Transmission Date: 20200409
  Serious: Yes (Other)
  Sender: FDA-Public Use
  Company Number: NVSC2020DE059295

PATIENT
  Sex: Male

DRUGS (1)
  1. EXTAVIA [Suspect]
     Active Substance: INTERFERON BETA-1B
     Indication: PRODUCT USED FOR UNKNOWN INDICATION
     Dosage: UNK
     Route: 065

REACTIONS (6)
  - Vertigo [Unknown]
  - Nausea [Unknown]
  - Multiple sclerosis relapse [Unknown]
  - Muscle spasms [Unknown]
  - Sensory loss [Unknown]
  - Cerebral haemorrhage [Unknown]
